FAERS Safety Report 15409075 (Version 1)
Quarter: 2018Q3

REPORT INFORMATION
  Report Type: Spontaneous
  Country: IT (occurrence: IT)
  Receive Date: 20180920
  Receipt Date: 20180920
  Transmission Date: 20181010
  Serious: Yes (Hospitalization)
  Sender: FDA-Public Use
  Company Number: IT-SAKK-2018SA201829AA

PATIENT
  Age: 80 Year
  Sex: Female

DRUGS (6)
  1. CLEXANE T [Suspect]
     Active Substance: ENOXAPARIN SODIUM
     Indication: THROMBOSIS PROPHYLAXIS
     Dosage: 1 DF, QD
     Route: 058
     Dates: start: 20180312, end: 20180318
  2. PANTORC [Concomitant]
     Active Substance: PANTOPRAZOLE SODIUM
     Dosage: UNK UNK, UNK
     Route: 065
  3. METFORMINA DOC [Concomitant]
     Route: 065
  4. FERRO?GRAD [Concomitant]
     Active Substance: FERROUS SULFATE
     Route: 065
  5. ACETYLSALICYLIC ACID/ASCORBIC ACID [Suspect]
     Active Substance: ACETAMINOPHEN\ASCORBIC ACID
     Indication: ARTHRITIS
     Dosage: 1 DF, QD
     Route: 048
  6. SOLOSA [Concomitant]
     Active Substance: GLIMEPIRIDE
     Route: 065

REACTIONS (6)
  - Urine output decreased [Recovering/Resolving]
  - Hypertension [Recovering/Resolving]
  - Anaemia [Recovering/Resolving]
  - Gravitational oedema [Recovering/Resolving]
  - Dyspnoea [Recovering/Resolving]
  - Medication error [Unknown]

NARRATIVE: CASE EVENT DATE: 20180318
